FAERS Safety Report 7755701-4 (Version None)
Quarter: 2011Q3

REPORT INFORMATION
  Report Type: 
  Country: None (occurrence: None)
  Receive Date: 20110916
  Receipt Date: 20110903
  Transmission Date: 20111222
  Serious: Yes (Other)
  Sender: FDA-Public Use
  Company Number: PHHY2011US78751

PATIENT
  Age: 14 Year
  Sex: Male

DRUGS (8)
  1. METHOTREXATE [Concomitant]
     Indication: ACUTE GRAFT VERSUS HOST DISEASE
     Dosage: UNK UKN, UNK
  2. CLOFARABINE [Concomitant]
     Dosage: UNK UKN, UNK
  3. STEROIDS NOS [Concomitant]
     Dosage: UNK UKN, UNK
  4. PREDNISONE [Concomitant]
     Dosage: 20 MG, BID
  5. TACROLIMUS [Concomitant]
     Dosage: 1 MG, BID
  6. SIROLIMUS [Concomitant]
     Dosage: 1 MG, QD
  7. CYCLOSPORINE [Suspect]
     Indication: ACUTE GRAFT VERSUS HOST DISEASE
     Dosage: UNK UKN, UNK
  8. PREDNISONE [Concomitant]
     Dosage: 5 MG, ALTERNATING MORNINGS

REACTIONS (16)
  - GAIT DISTURBANCE [None]
  - JOINT RANGE OF MOTION DECREASED [None]
  - RED BLOOD CELL COUNT DECREASED [None]
  - HAEMOGLOBIN DECREASED [None]
  - CHRONIC GRAFT VERSUS HOST DISEASE [None]
  - CONVULSION [None]
  - SCLERODERMA [None]
  - SKIN EXFOLIATION [None]
  - MYOPATHY [None]
  - OSTEONECROSIS [None]
  - ACUTE LYMPHOCYTIC LEUKAEMIA RECURRENT [None]
  - MUSCLE CONTRACTURE [None]
  - PLATELET COUNT DECREASED [None]
  - ERYTHEMA [None]
  - SKIN TIGHTNESS [None]
  - ACUTE GRAFT VERSUS HOST DISEASE IN SKIN [None]
